FAERS Safety Report 15484846 (Version 1)
Quarter: 2018Q4

REPORT INFORMATION
  Report Type: Spontaneous
  Country: US (occurrence: US)
  Receive Date: 20181010
  Receipt Date: 20181010
  Transmission Date: 20190205
  Serious: No
  Sender: FDA-Public Use
  Company Number: US-ROCHE-2068472

PATIENT
  Age: 74 Year
  Sex: Male
  Weight: 93.07 kg

DRUGS (2)
  1. ZELBORAF [Suspect]
     Active Substance: VEMURAFENIB
     Indication: MALIGNANT MELANOMA
     Dosage: 4 PILLS TWICE A DAY FOR 28 DAYS ;ONGOING: YES
     Route: 048
     Dates: start: 20180112
  2. COTELLIC [Suspect]
     Active Substance: COBIMETINIB
     Indication: PRODUCT USED FOR UNKNOWN INDICATION
     Dosage: 3 PILLS A DAY FOR 21 DAYS ;ONGOING: YES
     Route: 048
     Dates: start: 20180112

REACTIONS (4)
  - Diarrhoea [Not Recovered/Not Resolved]
  - Lip swelling [Not Recovered/Not Resolved]
  - Rash [Not Recovered/Not Resolved]
  - Chapped lips [Unknown]

NARRATIVE: CASE EVENT DATE: 20180113
